FAERS Safety Report 9170243 (Version 2)
Quarter: 2013Q1

REPORT INFORMATION
  Report Type: Spontaneous
  Country: US (occurrence: None)
  Receive Date: 20130307
  Receipt Date: 20130312
  Transmission Date: 20140127
  Serious: Yes (Other)
  Sender: FDA-Public Use
  Company Number: USA/USA/13/0028338

PATIENT
  Age: 38 Year
  Sex: Female

DRUGS (3)
  1. CITALOPRAM [Suspect]
     Indication: PANIC DISORDER
     Route: 048
     Dates: start: 201302
  2. KLONOPIN (CLONAZEPAM) (TABLETS) [Concomitant]
  3. MULTI-VITAMIN [Concomitant]

REACTIONS (9)
  - Drug intolerance [None]
  - Drug ineffective [None]
  - Feeling hot [None]
  - Fatigue [None]
  - Nausea [None]
  - Tremor [None]
  - Product quality issue [None]
  - Panic disorder [None]
  - Disease recurrence [None]
